FAERS Safety Report 6500235-8 (Version None)
Quarter: 2009Q4

REPORT INFORMATION
  Report Type: 
  Country: None (occurrence: None)
  Receive Date: 20091215
  Receipt Date: 20091215
  Transmission Date: 20100525
  Serious: Yes (Disabling)
  Sender: FDA-Public Use
  Company Number: None

PATIENT
  Age: 40 Year
  Sex: Female
  Weight: 54.4316 kg

DRUGS (2)
  1. ZICAM COLD REMEDY NASAL SWABS N/A ZICAM [Suspect]
     Indication: NASAL CONGESTION
     Dosage: AS PER DIRECTIONS ON BOX -} INTRANASAL FEB/MARCH 2009
  2. ZICAM COLD REMEDY NASAL SWABS N/A ZICAM [Suspect]
     Indication: NASOPHARYNGITIS
     Dosage: AS PER DIRECTIONS ON BOX -} INTRANASAL FEB/MARCH 2009

REACTIONS (3)
  - HYPOGEUSIA [None]
  - HYPOSMIA [None]
  - IMPAIRED WORK ABILITY [None]
